FAERS Safety Report 8232339-6 (Version None)
Quarter: 2012Q1

REPORT INFORMATION
  Report Type: 
  Country: None (occurrence: None)
  Receive Date: 20120323
  Receipt Date: 20120320
  Transmission Date: 20120608
  Serious: Yes (Death)
  Sender: FDA-Public Use
  Company Number: US-GLAXOSMITHKLINE-A0935417A

PATIENT
  Age: 47 Year
  Sex: Female
  Weight: 69.1 kg

DRUGS (3)
  1. ADVAIR DISKUS 100/50 [Suspect]
     Indication: ASTHMA
     Dosage: 1PUFF TWICE PER DAY
     Route: 055
     Dates: start: 20080409
  2. FEXOFENADINE [Concomitant]
  3. COMBIVENT [Concomitant]
     Dates: start: 20080409

REACTIONS (3)
  - ASTHMA [None]
  - SUDDEN CARDIAC DEATH [None]
  - ARRHYTHMIA [None]
